FAERS Safety Report 14414498 (Version 2)
Quarter: 2018Q1

REPORT INFORMATION
  Report Type: Report from Study
  Country: US (occurrence: US)
  Receive Date: 20180120
  Receipt Date: 20180315
  Transmission Date: 20180509
  Serious: Yes (Hospitalization)
  Sender: FDA-Public Use
  Company Number: PHEH2018US002230

PATIENT
  Age: 90 Year
  Sex: Male
  Weight: 63 kg

DRUGS (1)
  1. ENTRESTO [Suspect]
     Active Substance: SACUBITRIL\VALSARTAN
     Indication: CARDIAC FAILURE CONGESTIVE
     Dosage: 1 DF (SACUBITRIL 24 MG/ VALSARTAN 26 MG), UNK
     Route: 048
     Dates: start: 20170829

REACTIONS (9)
  - Productive cough [Unknown]
  - Bronchitis [Not Recovered/Not Resolved]
  - Chronic obstructive pulmonary disease [Not Recovered/Not Resolved]
  - Pulmonary congestion [Unknown]
  - Atelectasis [Unknown]
  - Pleural effusion [Unknown]
  - Cardiomegaly [Unknown]
  - Bronchospasm [Not Recovered/Not Resolved]
  - Dyspnoea [Recovering/Resolving]

NARRATIVE: CASE EVENT DATE: 20170829
